FAERS Safety Report 5086823-7 (Version None)
Quarter: 2006Q3

REPORT INFORMATION
  Report Type: 
  Country: None (occurrence: None)
  Receive Date: 20060823
  Receipt Date: 20060628
  Transmission Date: 20061208
  Serious: Yes (Hospitalization, Other)
  Sender: FDA-Public Use
  Company Number: PHHO2006JP10921

PATIENT
  Age: 71 Year
  Sex: Male
  Weight: 50 kg

DRUGS (16)
  1. ENTACAPONE [Suspect]
     Indication: PARKINSON'S DISEASE
     Dosage: 1200MG
     Route: 048
     Dates: start: 20040219, end: 20060814
  2. ENTACAPONE [Suspect]
     Dosage: 600MG
     Route: 048
     Dates: start: 20031120, end: 20040218
  3. MADOPAR [Concomitant]
  4. DEPAS [Concomitant]
  5. GASMOTIN [Concomitant]
  6. SYMMETREL [Concomitant]
  7. DOPS [Concomitant]
  8. AMOBAN [Concomitant]
     Dates: start: 20060530
  9. BASEN [Concomitant]
  10. CABASER [Concomitant]
  11. ANAFRANIL [Concomitant]
  12. ALOSENN [Concomitant]
  13. PURSENNID [Concomitant]
  14. INTEBAN [Concomitant]
  15. FLURBIPROFEN [Concomitant]
  16. KETOPROFEN [Concomitant]

REACTIONS (29)
  - ABDOMINAL DISTENSION [None]
  - ABDOMINAL PAIN [None]
  - ABNORMAL FAECES [None]
  - ANOREXIA [None]
  - ASCITES [None]
  - BLOOD GLUCOSE DECREASED [None]
  - BUNDLE BRANCH BLOCK RIGHT [None]
  - CHEST PAIN [None]
  - CHILLS [None]
  - CONSTIPATION [None]
  - DYSPHAGIA [None]
  - DYSURIA [None]
  - GASTRIC DISORDER [None]
  - GENERALISED OEDEMA [None]
  - HYPERTENSION [None]
  - ILEUS PARALYTIC [None]
  - MALAISE [None]
  - MUSCLE RIGIDITY [None]
  - MYALGIA [None]
  - PLEURAL EFFUSION [None]
  - PNEUMONIA [None]
  - PROTEINURIA [None]
  - PURPURA [None]
  - PYREXIA [None]
  - RASH ERYTHEMATOUS [None]
  - RENAL FAILURE [None]
  - SOMNOLENCE [None]
  - URINE OUTPUT DECREASED [None]
  - VOMITING [None]
